FAERS Safety Report 8843268 (Version 1)
Quarter: 2012Q4

REPORT INFORMATION
  Report Type: 
  Country: DE (occurrence: DE)
  Receive Date: 20121016
  Receipt Date: 20121016
  Transmission Date: 20130627
  Serious: Yes (Hospitalization, Disabling, Congenital Anomaly, Other)
  Sender: FDA-Public Use
  Company Number: GXKR2012DE003191

PATIENT

DRUGS (2)
  1. CITALOPRAM [Suspect]
     Dosage: Maternal dose: unknown dosage, probably taken throughout pregnancy
     Route: 064
  2. THYROXIN [Concomitant]
     Indication: HYPOTHYROIDISM
     Dosage: Maternal dose: unknown dosage, probably taken throughout pregnany
     Route: 064

REACTIONS (6)
  - Ventricular septal defect [Unknown]
  - Cleft lip and palate [Not Recovered/Not Resolved]
  - Atrial septal defect [Unknown]
  - Hypoglycaemia neonatal [Recovered/Resolved]
  - Neonatal respiratory distress syndrome [Recovered/Resolved]
  - Foetal exposure during pregnancy [Unknown]
